FAERS Safety Report 24878667 (Version 1)
Quarter: 2025Q1

REPORT INFORMATION
  Report Type: Spontaneous
  Country: US (occurrence: US)
  Receive Date: 20250123
  Receipt Date: 20250123
  Transmission Date: 20250408
  Serious: Yes (Other)
  Sender: TEVA
  Company Number: US-TEVA-VS-3288321

PATIENT
  Age: 74 Year
  Sex: Male

DRUGS (1)
  1. TRAZODONE HYDROCHLORIDE [Suspect]
     Active Substance: TRAZODONE HYDROCHLORIDE
     Indication: Anxiety
     Route: 065

REACTIONS (4)
  - Glaucoma [Unknown]
  - Therapeutic response unexpected [Unknown]
  - Hernia repair [Unknown]
  - Myocardial infarction [Unknown]
